FAERS Safety Report 24985573 (Version 1)
Quarter: 2025Q1

REPORT INFORMATION
  Report Type: Spontaneous
  Country: US (occurrence: US)
  Receive Date: 20250219
  Receipt Date: 20250219
  Transmission Date: 20250409
  Serious: No
  Sender: MERCK SHARP & DOHME LLC
  Company Number: US-PFIZER INC-PV202500017162

PATIENT
  Age: 61 Year
  Sex: Female

DRUGS (1)
  1. TUKYSA [Suspect]
     Active Substance: TUCATINIB
     Dosage: TAKE TWO TABLETS BY MOUTH TWICE DAILY
     Route: 048

REACTIONS (4)
  - Accidental underdose [Unknown]
  - Product packaging quantity issue [Unknown]
  - Product physical issue [Unknown]
  - Poor quality product administered [Unknown]
